FAERS Safety Report 14800940 (Version 4)
Quarter: 2018Q3

REPORT INFORMATION
  Report Type: Report from Study
  Country: ES (occurrence: ES)
  Receive Date: 20180424
  Receipt Date: 20180829
  Transmission Date: 20181010
  Serious: Yes (Hospitalization)
  Sender: FDA-Public Use
  Company Number: ES-TEVA-2018-ES-885106

PATIENT
  Age: 64 Year
  Sex: Male

DRUGS (5)
  1. METFORMINA (1359A) [Concomitant]
     Active Substance: METFORMIN HYDROCHLORIDE
     Indication: TYPE 2 DIABETES MELLITUS
     Route: 065
     Dates: start: 2009
  2. OLMESART?N + AMLODIPINO [Concomitant]
     Indication: HYPERTENSION
     Route: 065
     Dates: start: 2013
  3. CARVEDILOL 25 MG COMPRIMIDO [Suspect]
     Active Substance: CARVEDILOL
     Indication: HYPERTENSIVE HEART DISEASE
     Route: 065
     Dates: start: 2011, end: 20160615
  4. AMLODIPINE W/OLMESARTAN [Suspect]
     Active Substance: AMLODIPINE MALEATE\OLMESARTAN MEDOXOMIL
     Indication: HYPERTENSION
     Route: 065
     Dates: start: 2013
  5. ALOPURINOL (318A) [Concomitant]
     Active Substance: ALLOPURINOL
     Indication: HYPERURICAEMIA
     Route: 065
     Dates: start: 2008

REACTIONS (3)
  - Dyspnoea exertional [Recovered/Resolved]
  - Dizziness [Recovered/Resolved]
  - Sinus bradycardia [Recovered/Resolved]

NARRATIVE: CASE EVENT DATE: 20160615
